FAERS Safety Report 10562776 (Version 2)
Quarter: 2014Q4

REPORT INFORMATION
  Report Type: Spontaneous
  Country: GB (occurrence: GB)
  Receive Date: 20141104
  Receipt Date: 20141104
  Transmission Date: 20150529
  Serious: Yes (Other)
  Sender: FDA-Public Use
  Company Number: GB-ABBVIE-14P-167-1284270-00

PATIENT
  Age: 6 Year
  Weight: 21.4 kg

DRUGS (6)
  1. AQUADEKS [Concomitant]
     Indication: CYSTIC FIBROSIS
  2. PULMOZYME [Concomitant]
     Active Substance: DORNASE ALFA
     Indication: INCREASED VISCOSITY OF NASAL SECRETION
     Dosage: 2.5
     Dates: start: 2012
  3. COLOMYCIN [Concomitant]
     Active Substance: COLISTIN
     Indication: PSEUDOMONAS INFECTION
     Dosage: 2 MILLION IU
     Dates: start: 2012
  4. GARLIC. [Concomitant]
     Active Substance: GARLIC
     Indication: PRODUCT USED FOR UNKNOWN INDICATION
     Dosage: 5000 IU. ALTERNATE DAYS
     Route: 048
     Dates: start: 2013
  5. CREON [Suspect]
     Active Substance: PANCRELIPASE AMYLASE\PANCRELIPASE LIPASE\PANCRELIPASE PROTEASE
     Indication: PANCREATIC INSUFFICIENCY
     Dosage: 10,000. 1-6 PER MEAL/SNACK
     Route: 048
  6. AQUADEKS [Concomitant]
     Indication: MALABSORPTION
     Dosage: 2
     Route: 048
     Dates: start: 2012

REACTIONS (6)
  - Drug ineffective [Unknown]
  - Abdominal pain upper [Recovered/Resolved]
  - Malabsorption [Unknown]
  - Steatorrhoea [Recovered/Resolved]
  - Frequent bowel movements [Recovered/Resolved]
  - Abnormal faeces [Recovered/Resolved]

NARRATIVE: CASE EVENT DATE: 201406
